FAERS Safety Report 8763002 (Version 1)
Quarter: 2012Q4

REPORT INFORMATION
  Report Type: Spontaneous
  Country: US (occurrence: None)
  Receive Date: 20120830
  Receipt Date: 20120830
  Transmission Date: 20130627
  Serious: No
  Sender: FDA-Public Use
  Company Number: None

PATIENT
  Sex: Female
  Weight: 57.61 kg

DRUGS (1)
  1. TEGRETOL [Suspect]
     Dosage: 2 1/2 tabs BID Orally
     Route: 048

REACTIONS (1)
  - No therapeutic response [None]
